FAERS Safety Report 8895214 (Version 1)
Quarter: 2012Q4

REPORT INFORMATION
  Report Type: 
  Country: US (occurrence: US)
  Receive Date: 20121107
  Receipt Date: 20121107
  Transmission Date: 20130627
  Serious: No
  Sender: FDA-Public Use
  Company Number: US-AMGEN-USASP2011056424

PATIENT
  Age: 58 Year
  Sex: Female
  Weight: 79.37 kg

DRUGS (12)
  1. ENBREL [Suspect]
     Indication: PRODUCT USED FOR UNKNOWN INDICATION
     Dosage: 50 mg, qwk
     Route: 058
  2. LISINOPRIL AND HYDROCHLOROTHIAZIDE [Concomitant]
  3. METHOTREXATE [Concomitant]
     Dosage: 2.5 mg, UNK
  4. HYDROXYCHLOROQUINE [Concomitant]
     Dosage: 200 mg, UNK
  5. IBUPROFEN [Concomitant]
     Dosage: UNK
  6. ASTAXANTHIN [Concomitant]
     Dosage: 4 mg, UNK
  7. MULTIVITAMIN                       /00097801/ [Concomitant]
     Dosage: UNK
  8. VITAMIN E                          /00110501/ [Concomitant]
     Dosage: 1000 IU, UNK
  9. FISH OIL [Concomitant]
     Dosage: UNK
  10. ARGININE [Concomitant]
     Dosage: 500 UNK, UNK
  11. FOLIC ACID [Concomitant]
     Dosage: 1 mg, UNK
  12. VITAMIN B 12 LICHTENSTEIN [Concomitant]
     Dosage: 250 mug, UNK

REACTIONS (2)
  - Nervous system disorder [Unknown]
  - Headache [Unknown]
